FAERS Safety Report 6876500-1 (Version None)
Quarter: 2010Q3

REPORT INFORMATION
  Report Type: 
  Country: None (occurrence: None)
  Receive Date: 20100727
  Receipt Date: 20100707
  Transmission Date: 20110219
  Serious: Yes (Hospitalization)
  Sender: FDA-Public Use
  Company Number: PH-BRISTOL-MYERS SQUIBB COMPANY-14485767

PATIENT
  Age: 28 Year
  Sex: Female

DRUGS (2)
  1. ABILIFY [Suspect]
     Indication: BIPOLAR I DISORDER
     Route: 048
     Dates: start: 20090112, end: 20090120
  2. ZOLPIDEM [Concomitant]
     Dosage: 1 DF - 1 TAB
     Dates: start: 20090115, end: 20090120

REACTIONS (1)
  - MANIA [None]
